FAERS Safety Report 16958793 (Version 2)
Quarter: 2020Q4

REPORT INFORMATION
  Report Type: Spontaneous
  Country: US (occurrence: US)
  Receive Date: 20191024
  Receipt Date: 20201013
  Transmission Date: 20210113
  Serious: Yes (Disabling)
  Sender: FDA-Public Use
  Company Number: US-TEVA-2019-US-1125973

PATIENT
  Age: 67 Year
  Sex: Female
  Weight: 63.56 kg

DRUGS (5)
  1. DOCETAXEL SANOFI AVENTIS [Suspect]
     Active Substance: DOCETAXEL
     Indication: BREAST CANCER
     Dosage: EVERY THREE WEEKS FOR 4 CYCLES
     Route: 065
     Dates: start: 20151209, end: 20160216
  2. ACEBUTOLOL [Concomitant]
     Active Substance: ACEBUTOLOL
  3. HYDROCLOTOTHIAZIDE [Concomitant]
  4. DOCETAXEL ACCORD [Suspect]
     Active Substance: DOCETAXEL
     Indication: BREAST CANCER
     Dosage: EVERY THREE WEEKS FOR 4 CYCLES, 130MG DOSE
     Route: 065
     Dates: start: 20151209, end: 20160216
  5. CYCLOPHOSPHAMIDE (NEOSAR) [Concomitant]
     Indication: BREAST CANCER
     Dosage: EVERY THREE WEEKS 4 CYCLES
     Route: 065
     Dates: start: 20151209, end: 20160216

REACTIONS (3)
  - Hair disorder [Not Recovered/Not Resolved]
  - Alopecia [Not Recovered/Not Resolved]
  - Madarosis [Not Recovered/Not Resolved]
